FAERS Safety Report 18200525 (Version 1)
Quarter: 2020Q3

REPORT INFORMATION
  Report Type: Spontaneous
  Country: AT (occurrence: AT)
  Receive Date: 20200826
  Receipt Date: 20200826
  Transmission Date: 20201103
  Serious: Yes (Hospitalization)
  Sender: FDA-Public Use
  Company Number: AT-ELI_LILLY_AND_COMPANY-AT202008006266

PATIENT
  Age: 50 Year
  Sex: Female
  Weight: 71 kg

DRUGS (3)
  1. METOJECT [Suspect]
     Active Substance: METHOTREXATE SODIUM
     Indication: RHEUMATOID ARTHRITIS
     Dosage: 20 MG, WEEKLY (1/W)
     Route: 065
  2. OLUMIANT [Suspect]
     Active Substance: BARICITINIB
     Indication: RHEUMATOID ARTHRITIS
     Dosage: 4 MG, DAILY
     Route: 065
     Dates: start: 20200220, end: 20200525
  3. APREDNISLON [Suspect]
     Active Substance: PREDNISOLONE
     Indication: PRODUCT USED FOR UNKNOWN INDICATION
     Dosage: 5 MG, WEEKLY (1/W)
     Route: 065

REACTIONS (1)
  - Herpes zoster meningitis [Recovered/Resolved]

NARRATIVE: CASE EVENT DATE: 20200525
